FAERS Safety Report 13355228 (Version 15)
Quarter: 2017Q4

REPORT INFORMATION
  Report Type: Spontaneous
  Country: JP (occurrence: JP)
  Receive Date: 20170321
  Receipt Date: 20171115
  Transmission Date: 20180320
  Serious: Yes (Death, Life-Threatening, Hospitalization, Other)
  Sender: FDA-Public Use
  Company Number: JP-009507513-1703JPN000709J

PATIENT
  Age: 69 Year
  Sex: Male
  Weight: 41 kg

DRUGS (9)
  1. TEPRENONE [Concomitant]
     Active Substance: TEPRENONE
     Indication: PROPHYLAXIS
     Dosage: 50 MG, TID
     Route: 048
     Dates: start: 20170216
  2. CODEINE PHOSPHATE HYDRATE [Concomitant]
     Active Substance: CODEINE PHOSPHATE
     Dosage: 20 MG, BID
     Route: 048
     Dates: start: 20170307
  3. NAIXAN [Concomitant]
     Active Substance: NAPROXEN SODIUM
     Indication: LUNG ADENOCARCINOMA
     Dosage: 100.0 MG, TID
     Route: 048
  4. LEVOFLOXACIN HEMIHYDRATE [Concomitant]
     Active Substance: LEVOFLOXACIN
     Dosage: 500 MG, QD
     Route: 048
     Dates: start: 20170220, end: 20170225
  5. GENINAX [Concomitant]
     Active Substance: GARENOXACIN MESYLATE
     Dosage: 400 MG, QD
     Route: 048
     Dates: start: 20170307
  6. GASTER [Concomitant]
     Active Substance: FAMOTIDINE
     Indication: PROPHYLAXIS
     Dosage: 40 MG, QD
     Route: 042
     Dates: start: 20170314, end: 20170317
  7. ZOSYN [Concomitant]
     Active Substance: PIPERACILLIN SODIUM\TAZOBACTAM SODIUM
     Indication: PNEUMONIA
     Dosage: 4.5 G, QD
     Route: 041
     Dates: start: 20170314, end: 20170317
  8. MEDICON [Concomitant]
     Active Substance: DEXTROMETHORPHAN HYDROBROMIDE
     Dosage: 15.0 MG, TID
     Route: 048
     Dates: end: 20170307
  9. KEYTRUDA [Suspect]
     Active Substance: PEMBROLIZUMAB
     Indication: LUNG ADENOCARCINOMA
     Dosage: 200 MG, Q3W
     Route: 041
     Dates: start: 20170214, end: 20170307

REACTIONS (8)
  - Malignant neoplasm progression [Fatal]
  - Pneumonia [Fatal]
  - Pyrexia [Recovered/Resolved]
  - Pneumonia [Not Recovered/Not Resolved]
  - Restlessness [Not Recovered/Not Resolved]
  - Acute respiratory distress syndrome [Fatal]
  - Pleural effusion [Not Recovered/Not Resolved]
  - Hypoalbuminaemia [Not Recovered/Not Resolved]

NARRATIVE: CASE EVENT DATE: 20170214
